FAERS Safety Report 8263801-8 (Version None)
Quarter: 2012Q2

REPORT INFORMATION
  Report Type: 
  Country: None (occurrence: None)
  Receive Date: 20120405
  Receipt Date: 20120327
  Transmission Date: 20120825
  Serious: Yes (Disabling)
  Sender: FDA-Public Use
  Company Number: JP-ALLERGAN-1201789US

PATIENT
  Age: 39 Year
  Sex: Male

DRUGS (1)
  1. LUMIGAN [Suspect]
     Indication: GLAUCOMATOCYCLITIC CRISES
     Dosage: 2 GTT, QPM
     Route: 047
     Dates: start: 20111207, end: 20120118

REACTIONS (3)
  - INTRAOCULAR PRESSURE INCREASED [None]
  - EYE INFLAMMATION [None]
  - CONJUNCTIVAL HYPERAEMIA [None]
